FAERS Safety Report 6519442-3 (Version None)
Quarter: 2009Q4

REPORT INFORMATION
  Report Type: 
  Country: None (occurrence: None)
  Receive Date: 20091228
  Receipt Date: 20091222
  Transmission Date: 20100525
  Serious: Yes (Death)
  Sender: FDA-Public Use
  Company Number: DE-SANOFI-AVENTIS-2009SA008398

PATIENT
  Sex: Female

DRUGS (12)
  1. DELIX [Suspect]
     Indication: DRUG USE FOR UNKNOWN INDICATION
     Route: 048
     Dates: end: 20080310
  2. ISOPTIN [Interacting]
     Indication: DRUG USE FOR UNKNOWN INDICATION
     Route: 048
     Dates: end: 20080310
  3. FUROSEMID [Suspect]
     Indication: DRUG USE FOR UNKNOWN INDICATION
     Route: 048
     Dates: end: 20080310
  4. TRIARESE [Suspect]
     Indication: DRUG USE FOR UNKNOWN INDICATION
     Dosage: 50/25 MG/DAY
     Route: 048
     Dates: end: 20080310
  5. PROTHIPENDYL [Suspect]
     Indication: DRUG USE FOR UNKNOWN INDICATION
     Route: 048
     Dates: end: 20080213
  6. PROTHIPENDYL [Suspect]
     Route: 048
     Dates: start: 20080305, end: 20080305
  7. PROTHIPENDYL [Suspect]
     Route: 048
     Dates: start: 20080307, end: 20080307
  8. PROTHIPENDYL [Suspect]
     Route: 048
     Dates: start: 20080309, end: 20080309
  9. RISPERDAL [Suspect]
     Indication: DRUG USE FOR UNKNOWN INDICATION
     Route: 048
     Dates: start: 20080227, end: 20080303
  10. RISPERDAL [Suspect]
     Route: 048
     Dates: start: 20080304, end: 20080310
  11. CIPROFLOXACIN [Interacting]
     Indication: DRUG USE FOR UNKNOWN INDICATION
     Route: 048
     Dates: start: 20080304, end: 20080310
  12. MOTILIUM [Concomitant]
     Indication: DRUG USE FOR UNKNOWN INDICATION
     Route: 048
     Dates: start: 20080305, end: 20080310

REACTIONS (1)
  - DEATH [None]
